FAERS Safety Report 8902125 (Version 1)
Quarter: 2012Q4

REPORT INFORMATION
  Report Type: 
  Country: SE (occurrence: SE)
  Receive Date: 20121112
  Receipt Date: 20121112
  Transmission Date: 20130627
  Serious: Yes (Hospitalization, Other)
  Sender: FDA-Public Use
  Company Number: SE-PFIZER INC-2012279220

PATIENT
  Age: 74 Year
  Sex: Female
  Weight: 59.7 kg

DRUGS (4)
  1. GENOTROPIN [Suspect]
     Dosage: 0.4 mg, 1x/day, 7 injections/week
     Route: 058
     Dates: start: 20090314
  2. ESTROGEN NOS [Concomitant]
     Dosage: UNK
  3. THYROXINE ^APS^ [Concomitant]
     Dosage: UNK
  4. ATENOLOL [Concomitant]
     Dosage: UNK

REACTIONS (2)
  - Scleroderma [Unknown]
  - Rheumatic disorder [Unknown]
